FAERS Safety Report 9452252 (Version 1)
Quarter: 2013Q3

REPORT INFORMATION
  Report Type: Spontaneous
  Country: US (occurrence: US)
  Receive Date: 20130812
  Receipt Date: 20130812
  Transmission Date: 20140515
  Serious: Yes (Hospitalization, Other)
  Sender: FDA-Public Use
  Company Number: US-BRISTOL-MYERS SQUIBB COMPANY-19181569

PATIENT
  Age: 58 Year
  Sex: Male
  Weight: 100.22 kg

DRUGS (5)
  1. COUMADIN [Suspect]
     Route: 048
  2. LIPITOR [Suspect]
     Dosage: TABS
     Route: 048
     Dates: start: 200802
  3. CELEXA [Concomitant]
  4. LORTAB [Concomitant]
  5. ALLOPURINOL [Concomitant]

REACTIONS (3)
  - Wound [Unknown]
  - Haematotoxicity [Unknown]
  - Drug level decreased [Unknown]
